FAERS Safety Report 15641524 (Version 1)
Quarter: 2018Q4

REPORT INFORMATION
  Report Type: Spontaneous
  Country: CA (occurrence: CA)
  Receive Date: 20181120
  Receipt Date: 20181120
  Transmission Date: 20190205
  Serious: Yes (Death, Hospitalization)
  Sender: FDA-Public Use
  Company Number: CA-BAXTER-2018BAX028245

PATIENT
  Sex: Male

DRUGS (1)
  1. EXTRANEAL [Suspect]
     Active Substance: CALCIUM CHLORIDE\ICODEXTRIN\MAGNESIUM CHLORIDE\SODIUM CHLORIDE\SODIUM LACTATE
     Indication: PERITONEAL DIALYSIS
     Route: 033

REACTIONS (7)
  - Malignant melanoma [Fatal]
  - Hypotension [Unknown]
  - Gait disturbance [Unknown]
  - Decreased appetite [Unknown]
  - Fatigue [Unknown]
  - Asthenia [Unknown]
  - Pruritus [Unknown]
